FAERS Safety Report 20597718 (Version 20)
Quarter: 2024Q3

REPORT INFORMATION
  Report Type: Spontaneous
  Country: US (occurrence: US)
  Receive Date: 20220315
  Receipt Date: 20240827
  Transmission Date: 20241017
  Serious: Yes (Hospitalization, Other)
  Sender: ROCHE
  Company Number: US-ROCHE-2922886

PATIENT
  Age: 31 Year
  Sex: Female
  Weight: 68.04 kg

DRUGS (13)
  1. XOLAIR PFS [Suspect]
     Active Substance: OMALIZUMAB
     Indication: Idiopathic urticaria
     Dosage: STRENGTH: 150MG/ML?3 SYRINGES
     Route: 058
     Dates: start: 202108
  2. XOLAIR PFS [Suspect]
     Active Substance: OMALIZUMAB
  3. EMGALITY [Concomitant]
     Active Substance: GALCANEZUMAB-GNLM
  4. VALIUM [Concomitant]
     Active Substance: DIAZEPAM
  5. TAKHZYRO [Concomitant]
     Active Substance: LANADELUMAB-FLYO
  6. PROMETHAZINE HYDROCHLORIDE [Concomitant]
     Active Substance: PROMETHAZINE HYDROCHLORIDE
  7. ACETAMINOPHEN [Concomitant]
     Active Substance: ACETAMINOPHEN
     Dosage: SDV
  8. DIPHENHYDRAMINE [Concomitant]
     Active Substance: DIPHENHYDRAMINE
  9. SOLU-MEDROL [Concomitant]
     Active Substance: METHYLPREDNISOLONE SODIUM SUCCINATE
  10. BENLYSTA [Concomitant]
     Active Substance: BELIMUMAB
  11. DEXAMETHASONE [Concomitant]
     Active Substance: DEXAMETHASONE
  12. FAMOTIDINE [Concomitant]
     Active Substance: FAMOTIDINE
  13. CINRYZE [Concomitant]
     Active Substance: HUMAN C1-ESTERASE INHIBITOR

REACTIONS (14)
  - Swelling face [Recovered/Resolved]
  - Off label use [Unknown]
  - Swelling [Unknown]
  - Vertigo [Unknown]
  - Abdominal distension [Recovered/Resolved]
  - Migraine [Unknown]
  - Injection site reaction [Unknown]
  - Abdominal distension [Recovered/Resolved]
  - Pharyngeal swelling [Unknown]
  - Pulmonary embolism [Unknown]
  - Weight increased [Unknown]
  - Infection [Unknown]
  - Hereditary angioedema [Unknown]
  - Status migrainosus [Unknown]

NARRATIVE: CASE EVENT DATE: 20210930
